FAERS Safety Report 14156097 (Version 2)
Quarter: 2017Q4

REPORT INFORMATION
  Report Type: Spontaneous
  Country: JP (occurrence: JP)
  Receive Date: 20171103
  Receipt Date: 20171121
  Transmission Date: 20180321
  Serious: Yes (Death, Hospitalization, Other)
  Sender: FDA-Public Use
  Company Number: JP-009507513-1708JPN003212J

PATIENT
  Age: 76 Year
  Sex: Male

DRUGS (2)
  1. KEYTRUDA [Suspect]
     Active Substance: PEMBROLIZUMAB
     Dosage: 200 MG, Q3W
     Route: 041
     Dates: start: 20171002
  2. KEYTRUDA [Suspect]
     Active Substance: PEMBROLIZUMAB
     Indication: NON-SMALL CELL LUNG CANCER
     Dosage: 200 MG, Q3W
     Route: 041
     Dates: start: 20170807, end: 20170807

REACTIONS (6)
  - Malignant neoplasm progression [Fatal]
  - Tumour associated fever [Recovered/Resolved]
  - Cough [Unknown]
  - Obstructive airways disorder [Unknown]
  - Rash [Recovered/Resolved]
  - Lymphadenopathy [Fatal]

NARRATIVE: CASE EVENT DATE: 20170820
